FAERS Safety Report 9903055 (Version 2)
Quarter: 2014Q2

REPORT INFORMATION
  Report Type: Spontaneous
  Country: IT (occurrence: IT)
  Receive Date: 20140217
  Receipt Date: 20140415
  Transmission Date: 20141212
  Serious: Yes (Hospitalization)
  Sender: FDA-Public Use
  Company Number: PHHY2014IT018174

PATIENT
  Age: 70 Year
  Sex: Female

DRUGS (3)
  1. CARBAMAZEPINE [Suspect]
     Indication: TRIGEMINAL NEURALGIA
     Dosage: 1 DF, DAILY (POSOLOGY UNIT)
     Route: 048
     Dates: start: 20140125, end: 20140201
  2. BIFRIL [Concomitant]
     Dosage: UNK UKN, UNK
  3. NORVASC [Concomitant]
     Dosage: UNK UKN, UNK

REACTIONS (2)
  - Erythema [Recovering/Resolving]
  - Pruritus [Recovering/Resolving]
